FAERS Safety Report 21962214 (Version 1)
Quarter: 2023Q1

REPORT INFORMATION
  Report Type: Report from Study
  Country: FR (occurrence: FR)
  Receive Date: 20230207
  Receipt Date: 20230207
  Transmission Date: 20230418
  Serious: Yes (Death, Hospitalization)
  Sender: FDA-Public Use
  Company Number: FR-MYLANLABS-2023M1013284

PATIENT

DRUGS (2)
  1. PERINDOPRIL [Suspect]
     Active Substance: PERINDOPRIL
     Indication: Product used for unknown indication
     Dosage: 611 MILLIGRAM
     Route: 065
  2. AMLODIPINE [Suspect]
     Active Substance: AMLODIPINE BESYLATE
     Indication: Product used for unknown indication
     Dosage: 1248 MILLIGRAM
     Route: 065

REACTIONS (3)
  - Shock [Fatal]
  - Toxicity to various agents [Fatal]
  - Overdose [Fatal]
